FAERS Safety Report 7077308-7 (Version None)
Quarter: 2010Q4

REPORT INFORMATION
  Report Type: 
  Country: None (occurrence: None)
  Receive Date: 20101029
  Receipt Date: 20101029
  Transmission Date: 20110411
  Serious: Yes (Other)
  Sender: FDA-Public Use
  Company Number: None

PATIENT
  Sex: Female
  Weight: 72.7 kg

DRUGS (4)
  1. VENLAFAXINE HCL EXTENDED-RELEASE [Suspect]
     Indication: DEPRESSION
     Dosage: 75MG X'S 3 PILLS EVERY DAY ORAL
     Route: 048
  2. VENLAFAXINE HCL EXTENDED-RELEASE [Suspect]
     Indication: PANIC ATTACK
     Dosage: 75MG X'S 3 PILLS EVERY DAY ORAL
     Route: 048
  3. VENLAFAXINE HCL EXTENDED-RELEASE [Suspect]
     Indication: POST-TRAUMATIC STRESS DISORDER
     Dosage: 75MG X'S 3 PILLS EVERY DAY ORAL
     Route: 048
  4. EFFEXOR XR [Suspect]

REACTIONS (4)
  - PAIN [None]
  - PANIC ATTACK [None]
  - POST-TRAUMATIC STRESS DISORDER [None]
  - PRODUCT SUBSTITUTION ISSUE [None]
